FAERS Safety Report 19989186 (Version 3)
Quarter: 2021Q4

REPORT INFORMATION
  Report Type: Spontaneous
  Country: US (occurrence: US)
  Receive Date: 20211025
  Receipt Date: 20211220
  Transmission Date: 20220303
  Serious: Yes (Hospitalization)
  Sender: FDA-Public Use
  Company Number: US-BIOGEN-2021BI01060206

PATIENT
  Age: 51 Year
  Sex: Male

DRUGS (3)
  1. TYSABRI [Suspect]
     Active Substance: NATALIZUMAB
     Indication: Multiple sclerosis
     Route: 042
     Dates: start: 20110322, end: 20121206
  2. TYSABRI [Suspect]
     Active Substance: NATALIZUMAB
     Dosage: ON THERAPY FOR 29 MONTHS
     Route: 042
     Dates: start: 2019
  3. TYSABRI [Suspect]
     Active Substance: NATALIZUMAB
     Route: 042
     Dates: start: 20190521

REACTIONS (8)
  - Pneumonia bacterial [Unknown]
  - Atrial fibrillation [Not Recovered/Not Resolved]
  - Motor dysfunction [Unknown]
  - Fall [Recovered/Resolved]
  - Vomiting [Unknown]
  - Chills [Unknown]
  - Pyrexia [Unknown]
  - Hypertension [Unknown]

NARRATIVE: CASE EVENT DATE: 20210901
